FAERS Safety Report 22006472 (Version 1)
Quarter: 2023Q1

REPORT INFORMATION
  Report Type: Report from Study
  Country: US (occurrence: US)
  Receive Date: 20230217
  Receipt Date: 20230217
  Transmission Date: 20230418
  Serious: Yes (Hospitalization, Other)
  Sender: FDA-Public Use
  Company Number: US-GILEAD-2023-0617152

PATIENT
  Sex: Female

DRUGS (35)
  1. AZTREONAM LYSINE [Suspect]
     Active Substance: AZTREONAM LYSINE
     Indication: Chronic obstructive pulmonary disease
     Route: 065
  2. NITROSTAT [Concomitant]
     Active Substance: NITROGLYCERIN
     Dosage: 0.4 MG
  3. PROAIR HFA [Concomitant]
     Active Substance: ALBUTEROL SULFATE
     Dosage: 9 G
     Route: 055
  4. POTASSIUM CHLORIDE [Concomitant]
     Active Substance: POTASSIUM CHLORIDE
     Dosage: 10 MEQ TAB
  5. ALBUTEROL SULFATE [Concomitant]
     Active Substance: ALBUTEROL SULFATE
     Dosage: 3 ML, 0.083%
     Route: 055
  6. FUROSEMIDE [Concomitant]
     Active Substance: FUROSEMIDE
     Dosage: 40 MG
  7. EPIPEN [Concomitant]
     Active Substance: EPINEPHRINE
     Dosage: 0.3 MG
  8. VITAMIN D3 [Concomitant]
     Active Substance: CHOLECALCIFEROL
     Dosage: 1,000 UNIT TAB
  9. ACIDOPHILUS [Concomitant]
     Active Substance: LACTOBACILLUS ACIDOPHILUS
  10. CALCIUM GLUCONATE [Concomitant]
     Active Substance: CALCIUM GLUCONATE
  11. COLACE [Concomitant]
     Active Substance: DOCUSATE SODIUM
  12. FISH OIL [Concomitant]
     Active Substance: FISH OIL
     Dosage: 1000 MG
  13. MAGNESIUM OXIDE [Concomitant]
     Active Substance: MAGNESIUM OXIDE
     Dosage: 250 MG
  14. AZELASTINE HYDROCHLORIDE [Concomitant]
     Active Substance: AZELASTINE HYDROCHLORIDE
  15. DENTA 5000 PLUS [Concomitant]
     Active Substance: SODIUM FLUORIDE
  16. LORATADINE [Concomitant]
     Active Substance: LORATADINE
  17. HERBALS\PLANTAGO OVATA SEED COAT [Concomitant]
     Active Substance: HERBALS\PLANTAGO OVATA SEED COAT
  18. ASCORBIC ACID [Concomitant]
     Active Substance: ASCORBIC ACID
  19. SODIUM CHLORIDE [Concomitant]
     Active Substance: SODIUM CHLORIDE
     Dosage: 7% LC NEB VIAL
  20. TRELEGY ELLIPTA [Concomitant]
     Active Substance: FLUTICASONE FUROATE\UMECLIDINIUM BROMIDE\VILANTEROL TRIFENATATE
     Dosage: 100-62.5-25 MCG INH
     Route: 055
  21. TOBRAMYCIN [Concomitant]
     Active Substance: TOBRAMYCIN
     Dosage: 300MG/5ML INHLTN
     Route: 055
  22. NORCO [Concomitant]
     Active Substance: ACETAMINOPHEN\HYDROCODONE BITARTRATE
  23. FASENRA [Concomitant]
     Active Substance: BENRALIZUMAB
     Dosage: 30MG/ML PFS
  24. VITAMIN A ACETATE [Concomitant]
     Active Substance: VITAMIN A ACETATE
  25. RETAINE CMC [Concomitant]
  26. GUAIFENESIN LA [Concomitant]
  27. PROLIA [Concomitant]
     Active Substance: DENOSUMAB
     Dosage: 60MG/ML PFS
  28. OMEPRAZOLE [Concomitant]
     Active Substance: OMEPRAZOLE
  29. MONTELUKAST SODIUM [Concomitant]
     Active Substance: MONTELUKAST SODIUM
     Dosage: 10 MG
  30. FLUTICASONE PROPIONATE [Concomitant]
     Active Substance: FLUTICASONE PROPIONATE
     Dosage: 50MCG SPRAY
  31. PREDNISONE [Concomitant]
     Active Substance: PREDNISONE
     Dosage: 5 MG
  32. CETIRIZINE HYDROCHLORIDE [Concomitant]
     Active Substance: CETIRIZINE HYDROCHLORIDE
     Dosage: 10 MG
  33. AZITHROMYCIN [Concomitant]
     Active Substance: AZITHROMYCIN
  34. LYSINE [Concomitant]
     Active Substance: LYSINE
  35. B COMPLEX [NICOTINAMIDE;PYRIDOXINE HYDROCHLORIDE;RIBOFLAVIN;THIAMINE H [Concomitant]

REACTIONS (1)
  - Pneumonia [Unknown]
